FAERS Safety Report 10029432 (Version 1)
Quarter: 2014Q1

REPORT INFORMATION
  Report Type: Spontaneous
  Country: US (occurrence: US)
  Receive Date: 20140322
  Receipt Date: 20140322
  Transmission Date: 20141002
  Serious: Yes (Other)
  Sender: FDA-Public Use
  Company Number: PHEH2014US005632

PATIENT
  Sex: Male

DRUGS (1)
  1. FOCALIN XR [Suspect]
     Dosage: 5 MG, UNK

REACTIONS (6)
  - Painful erection [Not Recovered/Not Resolved]
  - Penile pain [Unknown]
  - Erection increased [Not Recovered/Not Resolved]
  - Genital discomfort [Unknown]
  - Chest pain [Unknown]
  - Palpitations [Unknown]
